FAERS Safety Report 21524365 (Version 6)
Quarter: 2023Q1

REPORT INFORMATION
  Report Type: Report from Study
  Country: US (occurrence: US)
  Receive Date: 20221029
  Receipt Date: 20230308
  Transmission Date: 20230417
  Serious: Yes (Hospitalization)
  Sender: FDA-Public Use
  Company Number: US-NOVARTISPH-NVSC2022US241543

PATIENT
  Sex: Male

DRUGS (1)
  1. ENTRESTO [Suspect]
     Active Substance: SACUBITRIL\VALSARTAN
     Indication: Product used for unknown indication
     Dosage: 1 DOSAGE FORM, BID
     Route: 048

REACTIONS (8)
  - Cardiac disorder [Unknown]
  - Viral infection [Unknown]
  - Cystitis [Not Recovered/Not Resolved]
  - Decreased activity [Unknown]
  - Constipation [Unknown]
  - Localised infection [Unknown]
  - Pain in extremity [Unknown]
  - Pruritus [Unknown]
